FAERS Safety Report 4308174-8 (Version None)
Quarter: 2004Q1

REPORT INFORMATION
  Report Type: 
  Country: None (occurrence: None)
  Receive Date: 20040301
  Receipt Date: 20030722
  Transmission Date: 20041129
  Serious: No
  Sender: FDA-Public Use
  Company Number: US-BRISTOL-MYERS SQUIBB COMPANY-12332938

PATIENT
  Age: 69 Year
  Sex: Female
  Weight: 64 kg

DRUGS (4)
  1. GLUCOPHAGE [Suspect]
     Indication: DIABETES MELLITUS
     Dosage: DURATION OF THERAPY:  ^4-5 YEARS^
     Route: 048
  2. AVACOR [Suspect]
  3. MULTI-VITAMIN [Concomitant]
     Dosage: DURATION OF THERAPY:  ^OVER 20 YEARS^
  4. ZESTRIL [Concomitant]

REACTIONS (3)
  - DRY SKIN [None]
  - HYPOTRICHOSIS [None]
  - NAIL DISORDER [None]
